FAERS Safety Report 23643550 (Version 1)
Quarter: 2024Q1

REPORT INFORMATION
  Report Type: Spontaneous
  Country: SE (occurrence: SE)
  Receive Date: 20240318
  Receipt Date: 20240318
  Transmission Date: 20240410
  Serious: Yes (Other)
  Sender: FDA-Public Use
  Company Number: None

PATIENT
  Age: 18 Year
  Sex: Female

DRUGS (1)
  1. LAMOTRIGINE [Suspect]
     Active Substance: LAMOTRIGINE
     Indication: Product used for unknown indication
     Dosage: 1X1
     Route: 048
     Dates: start: 20240129, end: 20240203

REACTIONS (7)
  - Hypersensitivity [Unknown]
  - Erythema [Unknown]
  - Cold sweat [Unknown]
  - Decreased appetite [Unknown]
  - Nausea [Unknown]
  - Headache [Unknown]
  - Pruritus [Unknown]

NARRATIVE: CASE EVENT DATE: 20240203
